FAERS Safety Report 4461208-2 (Version None)
Quarter: 2004Q3

REPORT INFORMATION
  Report Type: 
  Country: None (occurrence: None)
  Receive Date: 20040923
  Receipt Date: 20040913
  Transmission Date: 20050211
  Serious: Yes (Death, Hospitalization)
  Sender: FDA-Public Use
  Company Number: US-JNJFOC-20040903477

PATIENT
  Age: 19 Year
  Sex: Female

DRUGS (2)
  1. TYLENOL (GELTAB) [Suspect]
     Indication: SUICIDE ATTEMPT
     Dosage: ORAL
     Route: 048
  2. HYDROCODONE (HYDROCODONE) [Suspect]
     Indication: SUICIDE ATTEMPT
     Dosage: ORAL
     Route: 048

REACTIONS (12)
  - AMMONIA INCREASED [None]
  - BRAIN DEATH [None]
  - CARDIO-RESPIRATORY ARREST [None]
  - CONFUSIONAL STATE [None]
  - DRUG SCREEN POSITIVE [None]
  - FEELING ABNORMAL [None]
  - HEART RATE INCREASED [None]
  - HEPATIC FAILURE [None]
  - MENTAL STATUS CHANGES [None]
  - NECROSIS [None]
  - OVERDOSE [None]
  - SOMNOLENCE [None]
